FAERS Safety Report 17742433 (Version 3)
Quarter: 2020Q3

REPORT INFORMATION
  Report Type: Spontaneous
  Country: CA (occurrence: CA)
  Receive Date: 20200505
  Receipt Date: 20200817
  Transmission Date: 20201102
  Serious: Yes (Other)
  Sender: FDA-Public Use
  Company Number: CA-ROCHE-2594005

PATIENT
  Age: 57 Year
  Sex: Female

DRUGS (13)
  1. XOLAIR [Suspect]
     Active Substance: OMALIZUMAB
     Dosage: 300 MG, BIW
     Route: 058
     Dates: start: 20180908
  2. XOLAIR [Suspect]
     Active Substance: OMALIZUMAB
     Dosage: 300 MG, BIW
     Route: 058
     Dates: start: 20180312
  3. XOLAIR [Suspect]
     Active Substance: OMALIZUMAB
     Dosage: 300 MG, BIW
     Route: 058
     Dates: start: 20200501
  4. XOLAIR [Suspect]
     Active Substance: OMALIZUMAB
     Dosage: 300 MG, BIW
     Route: 058
     Dates: start: 20180507
  5. SINGULAIR [Concomitant]
     Active Substance: MONTELUKAST SODIUM
     Indication: PRODUCT USED FOR UNKNOWN INDICATION
     Dosage: 1 DF, QD
     Route: 055
     Dates: start: 1998
  6. COLCHICINE. [Concomitant]
     Active Substance: COLCHICINE
     Indication: PRODUCT USED FOR UNKNOWN INDICATION
     Dosage: 0.3 MG, FROM 6 DAYS
     Route: 065
  7. XOLAIR [Suspect]
     Active Substance: OMALIZUMAB
     Dosage: 300 MG, BIW
     Route: 058
     Dates: start: 20180326
  8. ADVAIR HFA [Concomitant]
     Active Substance: FLUTICASONE PROPIONATE\SALMETEROL XINAFOATE
     Indication: PRODUCT USED FOR UNKNOWN INDICATION
     Dosage: 2 UG, BID
     Route: 055
     Dates: start: 201603
  9. VENTOLIN [Concomitant]
     Active Substance: ALBUTEROL SULFATE
     Indication: PRODUCT USED FOR UNKNOWN INDICATION
     Dosage: 100 UG, OT
     Route: 055
     Dates: start: 1998
  10. XOLAIR [Suspect]
     Active Substance: OMALIZUMAB
     Indication: ASTHMA
     Dosage: 300 MG, BIW
     Route: 058
     Dates: start: 20180227, end: 20181010
  11. XOLAIR [Suspect]
     Active Substance: OMALIZUMAB
     Dosage: 300 MG, BIW
     Route: 058
     Dates: start: 20181010
  12. SPIRIVA [Concomitant]
     Active Substance: TIOTROPIUM BROMIDE MONOHYDRATE
     Indication: PRODUCT USED FOR UNKNOWN INDICATION
     Dosage: 2 DF, BID
     Route: 055
     Dates: start: 201712
  13. FLOVENT [Concomitant]
     Active Substance: FLUTICASONE PROPIONATE
     Indication: PRODUCT USED FOR UNKNOWN INDICATION
     Dosage: 250 UG, OT
     Route: 055
     Dates: start: 1998

REACTIONS (27)
  - Headache [Unknown]
  - Gingival disorder [Not Recovered/Not Resolved]
  - Wheezing [Unknown]
  - Cyst [Unknown]
  - Fatigue [Unknown]
  - Gingival swelling [Unknown]
  - Insomnia [Unknown]
  - Autoimmune disorder [Unknown]
  - Dizziness [Unknown]
  - Oxygen saturation decreased [Unknown]
  - Cough [Unknown]
  - Behcet^s syndrome [Unknown]
  - Hand fracture [Unknown]
  - Discomfort [Unknown]
  - Mouth ulceration [Not Recovered/Not Resolved]
  - Arthralgia [Unknown]
  - Dyspnoea [Unknown]
  - Fall [Unknown]
  - Swelling face [Not Recovered/Not Resolved]
  - Aphthous ulcer [Unknown]
  - General physical health deterioration [Unknown]
  - Pain [Unknown]
  - Mouth swelling [Unknown]
  - Dysphagia [Unknown]
  - Nausea [Unknown]
  - Asthma [Unknown]
  - Chest discomfort [Unknown]

NARRATIVE: CASE EVENT DATE: 20180326
